FAERS Safety Report 5239838-X (Version None)
Quarter: 2007Q1

REPORT INFORMATION
  Report Type: 
  Country: None (occurrence: None)
  Receive Date: 20070214
  Receipt Date: 20070214
  Transmission Date: 20070707
  Serious: Yes (Hospitalization)
  Sender: FDA-Public Use
  Company Number: None

PATIENT
  Sex: Male

DRUGS (12)
  1. CLOPIDOGREL [Suspect]
     Indication: CORONARY ARTERY DISEASE
     Dosage: 75 MG DAILY PO
     Route: 048
  2. CLOPIDOGREL [Suspect]
     Indication: PERIPHERAL VASCULAR DISORDER
     Dosage: 75 MG DAILY PO
     Route: 048
  3. ALBUTEROL [Concomitant]
  4. ASPIRIN [Concomitant]
  5. CEPHALEXIN [Concomitant]
  6. CYANOCOBALAMIN [Concomitant]
  7. FLUCONAZOLE [Concomitant]
  8. INSULIN [Concomitant]
  9. IPRATROPIUM BROMIDE [Concomitant]
  10. OMEPRAZOLE [Concomitant]
  11. OXYCODONE HCL [Concomitant]
  12. TERAZOSIN HCL [Concomitant]

REACTIONS (1)
  - HAEMATURIA [None]
